FAERS Safety Report 6839201-1 (Version None)
Quarter: 2010Q3

REPORT INFORMATION
  Report Type: 
  Country: None (occurrence: None)
  Receive Date: 20100714
  Receipt Date: 20100706
  Transmission Date: 20110219
  Serious: Yes (Other)
  Sender: FDA-Public Use
  Company Number: US-RB-012680-10

PATIENT
  Age: 36 Year
  Sex: Female

DRUGS (1)
  1. DELSYM ADULT GRAPE [Suspect]
     Dosage: AN UNKNOWN AMOUNT OF THE PRODUCT HAS BEEN DRUNK DIRECTLY FROM THE BOTTLE.
     Route: 048
     Dates: start: 20100705

REACTIONS (4)
  - ACCIDENTAL OVERDOSE [None]
  - ANXIETY [None]
  - FEELING ABNORMAL [None]
  - INSOMNIA [None]
